FAERS Safety Report 8047391-0 (Version None)
Quarter: 2012Q1

REPORT INFORMATION
  Report Type: 
  Country: None (occurrence: None)
  Receive Date: 20120116
  Receipt Date: 20120110
  Transmission Date: 20120608
  Serious: Yes (Other)
  Sender: FDA-Public Use
  Company Number: US-AMGEN-USASP2011069161

PATIENT
  Age: 79 Year
  Sex: Male
  Weight: 84 kg

DRUGS (36)
  1. PROCRIT [Suspect]
     Dosage: 24000 UNK, ONE TIME DOSE
     Dates: start: 20101102, end: 20101102
  2. PROCRIT [Suspect]
     Dosage: 28000 UNK, Q3WK
     Dates: start: 20101123, end: 20101123
  3. PROCRIT [Suspect]
     Dosage: 28000 UNK, Q3WK
     Dates: start: 20110627, end: 20110718
  4. PROCRIT [Suspect]
     Dosage: 30000 UNK, ONE TIME DOSE
     Dates: start: 20111212, end: 20111212
  5. ASPIRIN [Concomitant]
  6. PLAVIX [Concomitant]
  7. PROCRIT [Suspect]
     Dosage: 24000 UNK, UNK
     Dates: start: 20111024, end: 20111031
  8. PROCRIT [Suspect]
     Dosage: 40000 UNK, ONE TIME DOSE
     Dates: start: 20111227, end: 20111227
  9. LIPITOR [Concomitant]
  10. PROCRIT [Suspect]
     Dosage: 12000 UNK, ONE TIME DOSE
     Dates: start: 20100616, end: 20100616
  11. PROCRIT [Suspect]
     Dosage: 20000 UNK, QWK
     Dates: start: 20110426, end: 20110516
  12. LISINOPRIL [Concomitant]
  13. FISH OIL [Concomitant]
  14. PROCRIT [Suspect]
     Indication: RENAL FAILURE CHRONIC
     Dosage: UNK UNK, QWK
     Route: 058
     Dates: start: 20100312, end: 20100512
  15. PROCRIT [Suspect]
     Dosage: 15000 UNK, ONE TIME DOSE
     Dates: start: 20100630, end: 20100630
  16. FERAHEME [Concomitant]
     Dosage: 510 MG, ONE TIME DOSE
     Route: 042
     Dates: start: 20110606, end: 20110606
  17. PROCRIT [Suspect]
     Dosage: 36000 UNK, ONE TIME DOSE
     Dates: start: 20101214, end: 20101214
  18. PROCRIT [Suspect]
     Dosage: 20000 UNK, UNK
     Dates: start: 20111011, end: 20111017
  19. PROCRIT [Suspect]
     Dosage: 26000 UNK, ONE TIME DOSE
     Dates: start: 20111107, end: 20111107
  20. METOPROLOL TARTRATE [Concomitant]
  21. PROCRIT [Suspect]
     Dosage: 32000 UNK, ONE TIME DOSE
     Dates: start: 20110829, end: 20110829
  22. PROCRIT [Suspect]
     Dosage: 35000 UNK, ONE TIME DOSE
     Dates: start: 20111219, end: 20111219
  23. LASIX [Concomitant]
  24. KAYEXALATE [Concomitant]
  25. PROCRIT [Suspect]
     Dosage: 19000 UNK, Q3WK
     Dates: start: 20100908, end: 20100928
  26. PROCRIT [Suspect]
     Dosage: 30000 UNK, Q3WK
     Dates: start: 20110204, end: 20110412
  27. PROCRIT [Suspect]
     Dosage: 30000 UNK, ONE TIME DOSE
     Dates: start: 20110808, end: 20110808
  28. PROCRIT [Suspect]
     Dosage: 30000 UNK, UNK
     Dates: start: 20111121, end: 20111128
  29. VITAMIN C                          /00008001/ [Concomitant]
     Dosage: 500 MG, QD
     Dates: start: 20111024
  30. PROCRIT [Suspect]
     Indication: NEPHROGENIC ANAEMIA
     Dosage: 15000 UNK, UNK
     Dates: start: 20100512, end: 20100527
  31. PROCRIT [Suspect]
     Dosage: 16000 UNK, Q4WK
     Dates: start: 20100717, end: 20100816
  32. PROCRIT [Suspect]
     Dosage: 22000 UNK, Q2WK
     Dates: start: 20101012, end: 20101025
  33. PROCRIT [Suspect]
     Dosage: 28000 UNK, Q2WK
     Dates: start: 20110523, end: 20110606
  34. PROCRIT [Suspect]
     Dosage: 36000 UNK, ONE TIME DOSE
     Dates: start: 20111207, end: 20111207
  35. COLACE [Concomitant]
  36. FERAHEME [Concomitant]
     Dosage: 510 MG, UNK
     Route: 042
     Dates: start: 20100527, end: 20100527

REACTIONS (2)
  - THERAPEUTIC RESPONSE DECREASED [None]
  - APLASIA PURE RED CELL [None]
